FAERS Safety Report 5749734-7 (Version None)
Quarter: 2008Q2

REPORT INFORMATION
  Report Type: 
  Country: None (occurrence: None)
  Receive Date: 20080522
  Receipt Date: 20080522
  Transmission Date: 20081010
  Serious: Yes (Other)
  Sender: FDA-Public Use
  Company Number: None

PATIENT
  Age: 84 Year
  Sex: Female
  Weight: 80 kg

DRUGS (1)
  1. DOPAMINE HCL [Suspect]
     Indication: SEPTIC SHOCK
     Dosage: 10 ML/HR DAILY IV DRIP
     Route: 041
     Dates: start: 20061020, end: 20061026

REACTIONS (1)
  - ATRIAL FIBRILLATION [None]
